FAERS Safety Report 5903847-5 (Version None)
Quarter: 2008Q3

REPORT INFORMATION
  Report Type: 
  Country: None (occurrence: None)
  Receive Date: 20080919
  Receipt Date: 20080610
  Transmission Date: 20090109
  Serious: No
  Sender: FDA-Public Use
  Company Number: US-WYE-H04274408

PATIENT
  Age: 82 Year
  Sex: Male
  Weight: 64.92 kg

DRUGS (6)
  1. PRISTIQ [Suspect]
     Indication: DEPRESSION
     Dosage: 50 MG 1X PER 1 DAY, ORAL ; 50 MG 1X PER 1 DAY, ORAL ; 100 MG 1X PER 1 DAY, ORAL
     Route: 048
     Dates: start: 20080501, end: 20080701
  2. PRISTIQ [Suspect]
     Indication: DEPRESSION
     Dosage: 50 MG 1X PER 1 DAY, ORAL ; 50 MG 1X PER 1 DAY, ORAL ; 100 MG 1X PER 1 DAY, ORAL
     Route: 048
     Dates: start: 20080701, end: 20080701
  3. PRISTIQ [Suspect]
     Indication: DEPRESSION
     Dosage: 50 MG 1X PER 1 DAY, ORAL ; 50 MG 1X PER 1 DAY, ORAL ; 100 MG 1X PER 1 DAY, ORAL
     Route: 048
     Dates: start: 20080701
  4. ACETYLSALICYLIC ACID SRT [Suspect]
  5. ELAVIL [Concomitant]
  6. CRESTOR [Concomitant]

REACTIONS (4)
  - CONDITION AGGRAVATED [None]
  - COORDINATION ABNORMAL [None]
  - DISTURBANCE IN ATTENTION [None]
  - RASH MACULAR [None]
